FAERS Safety Report 4313580-1 (Version None)
Quarter: 2004Q1

REPORT INFORMATION
  Report Type: 
  Country: None (occurrence: None)
  Receive Date: 20040304
  Receipt Date: 20040213
  Transmission Date: 20041129
  Serious: Yes (Hospitalization)
  Sender: FDA-Public Use
  Company Number: USA031049465

PATIENT
  Age: 73 Year
  Sex: Female
  Weight: 48 kg

DRUGS (12)
  1. FORTEO [Suspect]
     Indication: OSTEOPOROSIS
     Dates: start: 20030128
  2. PREVACID [Concomitant]
  3. PREDNISONE [Concomitant]
  4. TYLENOL PM [Concomitant]
  5. ARTHRITIS PAIN FORMULA (PARACETAMOL) [Concomitant]
  6. FISH OIL [Concomitant]
  7. QUININE [Concomitant]
  8. LIPITOR [Concomitant]
  9. CALTRATE (CALCIUM CARBONATE) [Concomitant]
  10. CENTRUM [Concomitant]
  11. ALPRAZOLAM [Concomitant]
  12. PLAVIX [Concomitant]

REACTIONS (5)
  - DIVERTICULUM [None]
  - HAEMORRHOIDS [None]
  - RECTAL HAEMORRHAGE [None]
  - RECTAL POLYP [None]
  - SCAR [None]
